FAERS Safety Report 10372409 (Version 2)
Quarter: 2014Q4

REPORT INFORMATION
  Report Type: Spontaneous
  Country: US (occurrence: US)
  Receive Date: 20140808
  Receipt Date: 20141205
  Transmission Date: 20150528
  Serious: Yes (Other)
  Sender: FDA-Public Use
  Company Number: US-BRISTOL-MYERS SQUIBB COMPANY-20976684

PATIENT
  Age: 59 Year
  Sex: Female

DRUGS (1)
  1. SPRYCEL (CML) TABS 20 MG [Suspect]
     Active Substance: DASATINIB
     Indication: CHRONIC MYELOID LEUKAEMIA
     Dosage: 20MGOD
     Route: 048
     Dates: start: 20090105

REACTIONS (1)
  - Pleural effusion [Not Recovered/Not Resolved]

NARRATIVE: CASE EVENT DATE: 20140501
